FAERS Safety Report 4505297-5 (Version None)
Quarter: 2004Q4

REPORT INFORMATION
  Report Type: 
  Country: None (occurrence: None)
  Receive Date: 20041118
  Receipt Date: 20041118
  Transmission Date: 20050328
  Serious: No
  Sender: FDA-Public Use
  Company Number: None

PATIENT
  Sex: Male

DRUGS (9)
  1. OCTREOTIDE [Suspect]
     Indication: HAEMORRHAGE INTRACRANIAL
  2. OCTREOTIDE [Concomitant]
  3. PROTONIX [Concomitant]
  4. PHENYTOIN [Concomitant]
  5. DIAZEPAM [Concomitant]
  6. FENTANYL [Concomitant]
  7. TPN + FAT [Concomitant]
  8. ASPIRIN [Concomitant]
  9. ATIVAN [Concomitant]

REACTIONS (1)
  - SINUS BRADYCARDIA [None]
